FAERS Safety Report 8767138 (Version 4)
Quarter: 2013Q4

REPORT INFORMATION
  Report Type: Spontaneous
  Country: JP (occurrence: JP)
  Receive Date: 20120904
  Receipt Date: 20131125
  Transmission Date: 20140711
  Serious: Yes (Hospitalization)
  Sender: FDA-Public Use
  Company Number: JP-JNJFOC-20120900222

PATIENT
  Age: 75 Year
  Sex: Male
  Weight: 44 kg

DRUGS (4)
  1. TRAMCET [Suspect]
     Indication: PAIN
     Dosage: 1 DOSE 3 PER ONE DAY
     Route: 048
     Dates: start: 201204
  2. DEPAS [Suspect]
     Indication: PAIN
     Dosage: ONE PER ONE DAY
     Route: 048
     Dates: start: 201204
  3. PRORENAL [Suspect]
     Indication: PAIN
     Dosage: 3 PER ONE DAY
     Route: 048
     Dates: start: 201111
  4. LYRICA [Suspect]
     Indication: PAIN
     Dosage: ONE PER ONE DAY
     Route: 048
     Dates: start: 201110

REACTIONS (1)
  - Eosinophilic pneumonia [Recovering/Resolving]
